FAERS Safety Report 26038291 (Version 1)
Quarter: 2025Q4

REPORT INFORMATION
  Report Type: Spontaneous
  Country: CN (occurrence: CN)
  Receive Date: 20251113
  Receipt Date: 20251113
  Transmission Date: 20260117
  Serious: Yes (Hospitalization)
  Sender: COHERUS
  Company Number: CN-SHANGHAI JUNSHI BIOSCIENCES CO., LTD.-CN2025016383

PATIENT

DRUGS (4)
  1. TORIPALIMAB [Suspect]
     Active Substance: TORIPALIMAB
     Indication: Gallbladder cancer
     Dosage: 240 MG, EVERY 21 DAYS
     Route: 041
     Dates: start: 20251013, end: 20251013
  2. CARBOPLATIN [Suspect]
     Active Substance: CARBOPLATIN
     Indication: Gallbladder cancer
     Dosage: 350 MG, EVERY 21 DAYS
     Route: 041
     Dates: start: 20251013, end: 20251013
  3. GEMCITABINE HYDROCHLORIDE [Suspect]
     Active Substance: GEMCITABINE HYDROCHLORIDE
     Indication: Gallbladder cancer
     Dosage: 1.2 MG, EVERY 21 DAYS
     Route: 041
     Dates: start: 20251013, end: 20251013
  4. GEMCITABINE HYDROCHLORIDE [Suspect]
     Active Substance: GEMCITABINE HYDROCHLORIDE
     Dosage: 1.2 MG, EVERY 21 DAYS
     Route: 041
     Dates: start: 20251020, end: 20251020

REACTIONS (1)
  - Myelosuppression [Recovering/Resolving]

NARRATIVE: CASE EVENT DATE: 20251018
